FAERS Safety Report 7620272-X (Version None)
Quarter: 2011Q3

REPORT INFORMATION
  Report Type: 
  Country: None (occurrence: None)
  Receive Date: 20110719
  Receipt Date: 20110707
  Transmission Date: 20111222
  Serious: Yes (Other)
  Sender: FDA-Public Use
  Company Number: PHHY2011DK60547

PATIENT
  Age: 32 Year
  Sex: Male

DRUGS (1)
  1. RITALIN [Suspect]
     Indication: ATTENTION DEFICIT/HYPERACTIVITY DISORDER

REACTIONS (15)
  - ABNORMAL DREAMS [None]
  - DRUG DEPENDENCE [None]
  - PRESYNCOPE [None]
  - ANGER [None]
  - FEAR [None]
  - RESTLESSNESS [None]
  - HYPERHIDROSIS [None]
  - PANIC REACTION [None]
  - SKIN ODOUR ABNORMAL [None]
  - PSYCHOTIC DISORDER [None]
  - SLEEP DISORDER [None]
  - FATIGUE [None]
  - PALPITATIONS [None]
  - MORBID THOUGHTS [None]
  - FEELING ABNORMAL [None]
